FAERS Safety Report 12141649 (Version 3)
Quarter: 2016Q2

REPORT INFORMATION
  Report Type: Spontaneous
  Country: JP (occurrence: JP)
  Receive Date: 20160303
  Receipt Date: 20160610
  Transmission Date: 20160815
  Serious: Yes (Other)
  Sender: FDA-Public Use
  Company Number: JP-PFIZER INC-2016130994

PATIENT
  Age: 52 Year
  Sex: Female

DRUGS (1)
  1. BANAN [Suspect]
     Active Substance: CEFPODOXIME PROXETIL
     Dosage: UNK
     Route: 065
     Dates: start: 201109, end: 201109

REACTIONS (1)
  - Erythema multiforme [Unknown]
